FAERS Safety Report 11208048 (Version 1)
Quarter: 2015Q2

REPORT INFORMATION
  Report Type: Report from Study
  Country: US (occurrence: US)
  Receive Date: 20150622
  Receipt Date: 20150622
  Transmission Date: 20150821
  Serious: No
  Sender: FDA-Public Use
  Company Number: US-ABBVIE-15P-163-1375889-00

PATIENT
  Age: 64 Year
  Sex: Male

DRUGS (8)
  1. LIDOCAINE. [Concomitant]
     Active Substance: LIDOCAINE
     Indication: PAIN
  2. VIEKIRA PAK [Suspect]
     Active Substance: DASABUVIR\OMBITASVIR\PARITAPREVIR\RITONAVIR
     Indication: HEPATITIS C
     Dosage: 3 TAB (2 PINK/1 BEIGE) IN AM AND 1 TAB (BEIGE) IN PM
     Route: 048
     Dates: start: 201504, end: 201504
  3. HYDROCHLOROTHIAZIDE. [Concomitant]
     Active Substance: HYDROCHLOROTHIAZIDE
     Indication: PRODUCT USED FOR UNKNOWN INDICATION
  4. DICLOFENACO [Concomitant]
     Indication: PAIN
  5. ACCUPRIL [Concomitant]
     Active Substance: QUINAPRIL HYDROCHLORIDE
     Indication: PRODUCT USED FOR UNKNOWN INDICATION
  6. BACLOFEN. [Concomitant]
     Active Substance: BACLOFEN
     Indication: PAIN
  7. PRILOCAINE [Concomitant]
     Active Substance: PRILOCAINE
     Indication: PAIN
  8. OXYCONTIN [Concomitant]
     Active Substance: OXYCODONE HYDROCHLORIDE
     Indication: PAIN

REACTIONS (7)
  - Dyspnoea [Unknown]
  - Skin fissures [Recovering/Resolving]
  - Peripheral swelling [Recovering/Resolving]
  - Ocular hyperaemia [Recovered/Resolved]
  - Palpitations [Recovered/Resolved]
  - Dizziness [Recovered/Resolved]
  - Haemorrhage [Recovering/Resolving]

NARRATIVE: CASE EVENT DATE: 201504
